FAERS Safety Report 5976323-1 (Version None)
Quarter: 2008Q4

REPORT INFORMATION
  Report Type: 
  Country: None (occurrence: None)
  Receive Date: 20081202
  Receipt Date: 20081201
  Transmission Date: 20090506
  Serious: Yes (Other)
  Sender: FDA-Public Use
  Company Number: IT-ROXANE LABORATORIES, INC.-2008-RO-00309RO

PATIENT
  Age: 47 Year
  Sex: Female

DRUGS (3)
  1. DEXAMETHASONE [Suspect]
     Indication: MULTIPLE MYELOMA
  2. VINCRISTINE [Suspect]
     Indication: MULTIPLE MYELOMA
  3. IDARUBICIN HCL [Suspect]
     Indication: MULTIPLE MYELOMA

REACTIONS (1)
  - FIBROUS HISTIOCYTOMA [None]
